FAERS Safety Report 7754358-6 (Version None)
Quarter: 2011Q3

REPORT INFORMATION
  Report Type: 
  Country: None (occurrence: None)
  Receive Date: 20110915
  Receipt Date: 20110714
  Transmission Date: 20111222
  Serious: Yes (Hospitalization, Other)
  Sender: FDA-Public Use
  Company Number: PHHY2010JP59471

PATIENT
  Sex: Male

DRUGS (15)
  1. PAZOPANIB [Concomitant]
     Dosage: 800 MG
     Route: 048
     Dates: start: 20090325, end: 20090430
  2. ZOMETA [Concomitant]
  3. SALOBEL [Concomitant]
     Dosage: 1 DF, UNK
     Route: 048
     Dates: start: 20090323
  4. CARNACULIN [Concomitant]
     Dosage: 3 DF, UNK
     Route: 048
     Dates: start: 20100101
  5. MARZULENE S [Concomitant]
     Dosage: 3 G, UNK
     Route: 048
     Dates: start: 20100101
  6. ZOMETA [Concomitant]
  7. ISODINE GARGLE [Concomitant]
     Route: 048
  8. ZOMETA [Concomitant]
     Indication: METASTATIC RENAL CELL CARCINOMA
     Dates: start: 20091218, end: 20101108
  9. ZOMETA [Concomitant]
  10. SORAFENIB TOSILATE [Concomitant]
     Dosage: 400 MG, UNK
     Route: 048
     Dates: end: 20091123
  11. ASPIRIN [Concomitant]
     Dosage: 1 DF, UNK
     Route: 048
     Dates: start: 20100101
  12. SORAFENIB TOSILATE [Concomitant]
     Indication: METASTATIC RENAL CELL CARCINOMA
     Dosage: 800 MG, UNK
     Route: 048
     Dates: start: 20090717
  13. ISODINE GARGLE [Concomitant]
     Indication: PROPHYLAXIS
     Route: 048
  14. AFINITOR [Suspect]
     Indication: METASTATIC RENAL CELL CARCINOMA
     Dosage: 10 MG, DAILY
     Route: 048
     Dates: start: 20100507
  15. CANDESARTAN CILEXETIL [Concomitant]
     Dosage: 2 DF, UNK
     Route: 048
     Dates: start: 20091225

REACTIONS (6)
  - NEOPLASM MALIGNANT [None]
  - BONE PAIN [None]
  - C-REACTIVE PROTEIN INCREASED [None]
  - MUSCULOSKELETAL PAIN [None]
  - LYMPHOCYTE COUNT DECREASED [None]
  - HYPERTENSION [None]
